FAERS Safety Report 22383875 (Version 1)
Quarter: 2023Q2

REPORT INFORMATION
  Report Type: Report from Study
  Country: US (occurrence: US)
  Receive Date: 20230530
  Receipt Date: 20230530
  Transmission Date: 20230721
  Serious: Yes (Hospitalization)
  Sender: FDA-Public Use
  Company Number: US-ORPHANEU-2023003088

PATIENT

DRUGS (11)
  1. CARBAGLU [Suspect]
     Active Substance: CARGLUMIC ACID
     Indication: Propionic acidaemia
     Dosage: 600 MILLIGRAM, BID
     Dates: start: 202208
  2. CARBAGLU [Suspect]
     Active Substance: CARGLUMIC ACID
     Dosage: 800 MILLIGRAM, BID
  3. CARBAGLU [Suspect]
     Active Substance: CARGLUMIC ACID
     Dosage: 1200 MG PER DAY
  4. OMEPRAZOLE [Concomitant]
     Active Substance: OMEPRAZOLE
     Indication: Product used for unknown indication
     Dosage: UNK
     Dates: start: 20220825
  5. VITAMIN D3 [Concomitant]
     Active Substance: CHOLECALCIFEROL
     Indication: Product used for unknown indication
     Dosage: UNK
     Dates: start: 20220825
  6. ISOLEUCINE [Concomitant]
     Active Substance: ISOLEUCINE
     Indication: Product used for unknown indication
     Dosage: UNK
     Dates: start: 20220825
  7. VALINE [Concomitant]
     Active Substance: VALINE
     Indication: Product used for unknown indication
     Dosage: UNK
     Dates: start: 20220825
  8. BIOTIN [Concomitant]
     Active Substance: BIOTIN
     Indication: Product used for unknown indication
     Dosage: UNK
     Dates: start: 20220825
  9. IRON [Concomitant]
     Active Substance: IRON
     Indication: Product used for unknown indication
     Dosage: UNK
     Dates: start: 20220825
  10. LEVOCARNITINE [Concomitant]
     Active Substance: LEVOCARNITINE
     Indication: Product used for unknown indication
     Dosage: UNK
     Dates: start: 20220825
  11. KEPPRA [Concomitant]
     Active Substance: LEVETIRACETAM
     Indication: Product used for unknown indication
     Dosage: UNK
     Dates: start: 20220825

REACTIONS (3)
  - Cough [Unknown]
  - Ammonia increased [Unknown]
  - Oropharyngeal pain [Unknown]

NARRATIVE: CASE EVENT DATE: 20230501
